FAERS Safety Report 17214898 (Version 1)
Quarter: 2020Q1

REPORT INFORMATION
  Report Type: Spontaneous
  Country: US (occurrence: US)
  Receive Date: 20191227
  Receipt Date: 20191227
  Transmission Date: 20200409
  Serious: Yes (Hospitalization)
  Sender: FDA-Public Use
  Company Number: None

PATIENT
  Age: 53 Year
  Sex: Female

DRUGS (2)
  1. CAPECITABINE. [Suspect]
     Active Substance: CAPECITABINE
     Indication: NEOPLASM
     Route: 048
     Dates: start: 20191202
  2. NONE REPORTED [Concomitant]

REACTIONS (2)
  - Cerebrovascular accident [None]
  - Condition aggravated [None]
